FAERS Safety Report 24732579 (Version 1)
Quarter: 2024Q4

REPORT INFORMATION
  Report Type: Spontaneous
  Country: CA (occurrence: CA)
  Receive Date: 20241213
  Receipt Date: 20241213
  Transmission Date: 20250114
  Serious: Yes (Hospitalization, Disabling, Congenital Anomaly, Other)
  Sender: COVIS PHARMA GMBH
  Company Number: CA-Covis Pharma Europe B.V.-2024COV01465

PATIENT
  Age: 80 Year
  Sex: Male

DRUGS (17)
  1. CICLESONIDE [Suspect]
     Active Substance: CICLESONIDE
     Indication: Asthma
     Route: 065
  2. ASPIRIN [Suspect]
     Active Substance: ASPIRIN
  3. AMLODIPINE BESYLATE [Suspect]
     Active Substance: AMLODIPINE BESYLATE
  4. PANTOPRAZOLE SODIUM ANHYDROUS [Suspect]
     Active Substance: PANTOPRAZOLE SODIUM ANHYDROUS
  5. BUDESONIDE [Suspect]
     Active Substance: BUDESONIDE
     Indication: Asthma
  6. DOXYCYCLINE [Suspect]
     Active Substance: DOXYCYCLINE
  7. FLOMAX [Suspect]
     Active Substance: TAMSULOSIN HYDROCHLORIDE
  8. INFLUENZA VIRUS VACCINE [Suspect]
     Active Substance: INFLUENZA VIRUS VACCINE
     Indication: Prophylaxis
  9. LEVOFLOXACIN [Suspect]
     Active Substance: LEVOFLOXACIN
     Indication: Prophylaxis
  10. MESALAMINE [Suspect]
     Active Substance: MESALAMINE
  11. NAPROXEN [Suspect]
     Active Substance: NAPROXEN
  12. AZITHROMYCIN ANHYDROUS [Suspect]
     Active Substance: AZITHROMYCIN ANHYDROUS
  13. PREDNISONE [Suspect]
     Active Substance: PREDNISONE
     Indication: Asthma
  14. PREGABALIN [Suspect]
     Active Substance: PREGABALIN
  15. RAMIPRIL [Suspect]
     Active Substance: RAMIPRIL
     Indication: Asthma prophylaxis
  16. ROSUVASTATIN CALCIUM [Suspect]
     Active Substance: ROSUVASTATIN CALCIUM
  17. TAMSULOSIN HYDROCHLORIDE [Suspect]
     Active Substance: TAMSULOSIN HYDROCHLORIDE

REACTIONS (1)
  - Asthma [Unknown]
